FAERS Safety Report 5805325-0 (Version None)
Quarter: 2008Q3

REPORT INFORMATION
  Report Type: 
  Country: None (occurrence: None)
  Receive Date: 20080709
  Receipt Date: 20080702
  Transmission Date: 20090109
  Serious: Yes (Death, Hospitalization)
  Sender: FDA-Public Use
  Company Number: NZ-ELI_LILLY_AND_COMPANY-NZ200807000584

PATIENT
  Age: 19 Year
  Sex: Female
  Weight: 148 kg

DRUGS (2)
  1. BYETTA [Suspect]
     Indication: PRADER-WILLI SYNDROME
     Dosage: 10 UG, UNKNOWN
     Route: 058
     Dates: start: 20080506
  2. INSULIN [Concomitant]
     Indication: PRADER-WILLI SYNDROME
     Dosage: UNK, UNKNOWN

REACTIONS (3)
  - CARDIAC FAILURE [None]
  - FLUID RETENTION [None]
  - MYOCARDIAL INFARCTION [None]
